FAERS Safety Report 10964250 (Version 1)
Quarter: 2015Q1

REPORT INFORMATION
  Report Type: Report from Study
  Country: AU (occurrence: AU)
  Receive Date: 20150329
  Receipt Date: 20150329
  Transmission Date: 20150721
  Serious: Yes (Death)
  Sender: FDA-Public Use
  Company Number: PHHY2015AU037034

PATIENT
  Age: 58 Year
  Sex: Male

DRUGS (1)
  1. CLOZARIL [Suspect]
     Active Substance: CLOZAPINE
     Indication: SCHIZOPHRENIA
     Dosage: 600 OT, UNK
     Route: 048
     Dates: start: 19940816

REACTIONS (1)
  - Death [Fatal]

NARRATIVE: CASE EVENT DATE: 20150314
